FAERS Safety Report 4956337-0 (Version None)
Quarter: 2006Q1

REPORT INFORMATION
  Report Type: 
  Country: None (occurrence: None)
  Receive Date: 20060328
  Receipt Date: 20060328
  Transmission Date: 20060701
  Serious: Yes (Hospitalization)
  Sender: FDA-Public Use
  Company Number: None

PATIENT
  Age: 23 Year
  Sex: Male
  Weight: 117 kg

DRUGS (2)
  1. AMOXICILLIN [Suspect]
     Indication: PHARYNGOLARYNGEAL PAIN
     Dosage: TOTAL 4 CAPS PO
     Route: 048
  2. AMOXICILLIN [Suspect]
     Indication: VIRAL INFECTION
     Dosage: TOTAL 4 CAPS PO
     Route: 048

REACTIONS (5)
  - BLOOD BLISTER [None]
  - DIARRHOEA [None]
  - PETECHIAE [None]
  - THROMBOCYTOPENIA [None]
  - VIRAL INFECTION [None]
